FAERS Safety Report 7166645-3 (Version None)
Quarter: 2010Q4

REPORT INFORMATION
  Report Type: 
  Country: None (occurrence: None)
  Receive Date: 20101203
  Receipt Date: 20101124
  Transmission Date: 20110411
  Serious: Yes (Life-Threatening, Hospitalization)
  Sender: FDA-Public Use
  Company Number: LTI2010A00240

PATIENT
  Age: 40 Year
  Sex: Male

DRUGS (7)
  1. COMPETACT (PIOGLITAZONE HYDROCHLORIDE,METFORMIN HYDROCHLORIDE) [Suspect]
     Indication: TYPE 2 DIABETES MELLITUS
     Dosage: 1 DF (1 DF,1 IN 1 D) ORAL
     Route: 048
     Dates: end: 20091122
  2. PANDERMIX (INFLUENZA VACCINE H1N1-INACTIVATED INFLUENZA (FLU) VIRUSES) [Suspect]
     Indication: INFLUENZA IMMUNISATION
     Dosage: 1 DF (1 DF,1 IN 1 D) INJECTION
     Route: 042
     Dates: start: 20091120, end: 20091120
  3. IRBESARTAN [Suspect]
     Indication: HYPERTENSION
     Dosage: (D) ORAL
     Route: 048
     Dates: end: 20091122
  4. PRAVADUAL (PRAVASTATINE, ACETYLSALICYLIC ACID) [Concomitant]
  5. SOLIAN (AMISULPRIDE) [Concomitant]
  6. XATRAL (ALFUZOSIN) [Concomitant]
  7. AKINETON [Concomitant]

REACTIONS (20)
  - ARTHRALGIA [None]
  - ASTHENIA [None]
  - BODY TEMPERATURE DECREASED [None]
  - CHOLESTASIS [None]
  - COMA ACIDOTIC [None]
  - COMPLEX REGIONAL PAIN SYNDROME [None]
  - CYTOLYTIC HEPATITIS [None]
  - DIALYSIS [None]
  - GAIT DISTURBANCE [None]
  - HAEMODYNAMIC INSTABILITY [None]
  - INCOHERENT [None]
  - INFLAMMATION [None]
  - LACTIC ACIDOSIS [None]
  - NORMOCHROMIC NORMOCYTIC ANAEMIA [None]
  - PNEUMONIA [None]
  - PULMONARY OEDEMA [None]
  - RENAL FAILURE ACUTE [None]
  - RESPIRATORY DISTRESS [None]
  - SEPTIC SHOCK [None]
  - VOMITING PROJECTILE [None]
